FAERS Safety Report 23970136 (Version 4)
Quarter: 2024Q3

REPORT INFORMATION
  Report Type: Spontaneous
  Country: CA (occurrence: CA)
  Receive Date: 20240613
  Receipt Date: 20240923
  Transmission Date: 20241016
  Serious: Yes (Death, Life-Threatening, Hospitalization, Disabling, Congenital Anomaly, Other)
  Sender: Haleon PLC
  Company Number: CA-HEALTHCANVIG-00914024

PATIENT
  Age: 43 Year
  Sex: Female
  Weight: 96 kg

DRUGS (79)
  1. DICLOFENAC SODIUM [Suspect]
     Active Substance: DICLOFENAC\DICLOFENAC SODIUM
     Indication: Product used for unknown indication
     Route: 065
  2. DICLOFENAC SODIUM [Suspect]
     Active Substance: DICLOFENAC\DICLOFENAC SODIUM
     Route: 065
  3. DICLOFENAC SODIUM [Suspect]
     Active Substance: DICLOFENAC\DICLOFENAC SODIUM
     Route: 058
  4. ERELZI [Suspect]
     Active Substance: ETANERCEPT-SZZS
     Indication: Rheumatoid arthritis
     Route: 058
  5. ERELZI [Suspect]
     Active Substance: ETANERCEPT-SZZS
     Route: 058
  6. ERELZI [Suspect]
     Active Substance: ETANERCEPT-SZZS
     Route: 058
  7. ERELZI [Suspect]
     Active Substance: ETANERCEPT-SZZS
     Route: 058
  8. ADALIMUMAB [Suspect]
     Active Substance: ADALIMUMAB
     Indication: Rheumatoid arthritis
     Route: 058
  9. ADALIMUMAB [Suspect]
     Active Substance: ADALIMUMAB
     Route: 065
  10. ADALIMUMAB [Suspect]
     Active Substance: ADALIMUMAB
     Route: 058
  11. ADALIMUMAB [Suspect]
     Active Substance: ADALIMUMAB
     Route: 048
  12. ADALIMUMAB [Suspect]
     Active Substance: ADALIMUMAB
     Route: 058
  13. ADALIMUMAB [Suspect]
     Active Substance: ADALIMUMAB
     Route: 058
  14. ADALIMUMAB [Suspect]
     Active Substance: ADALIMUMAB
     Route: 058
  15. HYRIMOZ [Suspect]
     Active Substance: ADALIMUMAB-ADAZ
     Indication: Rheumatoid arthritis
     Route: 065
  16. FOLIC ACID [Suspect]
     Active Substance: FOLIC ACID
     Indication: Rheumatoid arthritis
     Route: 048
  17. FOLIC ACID [Suspect]
     Active Substance: FOLIC ACID
     Route: 058
  18. FOLIC ACID [Suspect]
     Active Substance: FOLIC ACID
     Route: 065
  19. FOLIC ACID [Suspect]
     Active Substance: FOLIC ACID
     Route: 065
  20. FOLIC ACID [Suspect]
     Active Substance: FOLIC ACID
     Route: 065
  21. FOLIC ACID [Suspect]
     Active Substance: FOLIC ACID
     Route: 065
  22. FOLIC ACID [Suspect]
     Active Substance: FOLIC ACID
     Route: 048
  23. FOLIC ACID [Suspect]
     Active Substance: FOLIC ACID
     Route: 065
  24. FOLIC ACID [Suspect]
     Active Substance: FOLIC ACID
     Route: 065
  25. FOLIC ACID [Suspect]
     Active Substance: FOLIC ACID
     Route: 048
  26. FOLIC ACID [Suspect]
     Active Substance: FOLIC ACID
     Route: 048
  27. FOLIC ACID [Suspect]
     Active Substance: FOLIC ACID
     Route: 065
  28. FOLIC ACID [Suspect]
     Active Substance: FOLIC ACID
     Route: 058
  29. FOLIC ACID [Suspect]
     Active Substance: FOLIC ACID
     Route: 065
  30. FOLIC ACID [Suspect]
     Active Substance: FOLIC ACID
     Route: 065
  31. FOLIC ACID [Suspect]
     Active Substance: FOLIC ACID
     Route: 048
  32. FOLIC ACID [Suspect]
     Active Substance: FOLIC ACID
     Route: 048
  33. FOLIC ACID [Suspect]
     Active Substance: FOLIC ACID
     Route: 048
  34. METHOTREXATE [Suspect]
     Active Substance: METHOTREXATE
     Indication: Rheumatoid arthritis
     Route: 048
  35. METHOTREXATE [Suspect]
     Active Substance: METHOTREXATE
     Route: 013
  36. METHOTREXATE [Suspect]
     Active Substance: METHOTREXATE
     Route: 048
  37. METHOTREXATE [Suspect]
     Active Substance: METHOTREXATE
     Route: 048
  38. METHOTREXATE [Suspect]
     Active Substance: METHOTREXATE
     Route: 058
  39. METHOTREXATE [Suspect]
     Active Substance: METHOTREXATE
     Route: 048
  40. METHOTREXATE [Suspect]
     Active Substance: METHOTREXATE
     Route: 048
  41. METHOTREXATE [Suspect]
     Active Substance: METHOTREXATE
     Route: 048
  42. METHOTREXATE [Suspect]
     Active Substance: METHOTREXATE
     Route: 065
  43. METHOTREXATE [Suspect]
     Active Substance: METHOTREXATE
     Route: 065
  44. METHOTREXATE [Suspect]
     Active Substance: METHOTREXATE
     Route: 065
  45. METHOTREXATE [Suspect]
     Active Substance: METHOTREXATE
     Route: 065
  46. METHOTREXATE [Suspect]
     Active Substance: METHOTREXATE
     Route: 048
  47. METHOTREXATE [Suspect]
     Active Substance: METHOTREXATE
     Route: 048
  48. METHOTREXATE [Suspect]
     Active Substance: METHOTREXATE
     Route: 048
  49. METHOTREXATE [Suspect]
     Active Substance: METHOTREXATE
     Route: 048
  50. METHOTREXATE [Suspect]
     Active Substance: METHOTREXATE
     Route: 048
  51. METHOTREXATE [Suspect]
     Active Substance: METHOTREXATE
     Route: 048
  52. METHOTREXATE [Suspect]
     Active Substance: METHOTREXATE
     Route: 013
  53. METHOTREXATE [Suspect]
     Active Substance: METHOTREXATE
     Route: 016
  54. METHOTREXATE [Suspect]
     Active Substance: METHOTREXATE
     Route: 065
  55. METHOTREXATE [Suspect]
     Active Substance: METHOTREXATE
     Route: 048
  56. METHOTREXATE [Suspect]
     Active Substance: METHOTREXATE
     Route: 048
  57. METHOTREXATE [Suspect]
     Active Substance: METHOTREXATE
     Route: 048
  58. METHOTREXATE [Suspect]
     Active Substance: METHOTREXATE
     Route: 048
  59. METHOTREXATE [Suspect]
     Active Substance: METHOTREXATE
     Route: 048
  60. METHOTREXATE [Suspect]
     Active Substance: METHOTREXATE
     Route: 048
  61. METHOTREXATE [Suspect]
     Active Substance: METHOTREXATE
     Route: 048
  62. METHOTREXATE [Suspect]
     Active Substance: METHOTREXATE
     Route: 013
  63. METHOTREXATE [Suspect]
     Active Substance: METHOTREXATE
     Route: 065
  64. METHOTREXATE [Suspect]
     Active Substance: METHOTREXATE
     Route: 051
  65. METHOTREXATE [Suspect]
     Active Substance: METHOTREXATE
     Route: 058
  66. MYCOPHENOLATE MOFETIL [Suspect]
     Active Substance: MYCOPHENOLATE MOFETIL
     Indication: Product used for unknown indication
     Route: 065
  67. RITUXIMAB [Suspect]
     Active Substance: RITUXIMAB
     Indication: Rheumatoid arthritis
     Route: 042
  68. RITUXIMAB [Suspect]
     Active Substance: RITUXIMAB
     Route: 042
  69. RITUXIMAB [Suspect]
     Active Substance: RITUXIMAB
     Route: 042
  70. RITUXIMAB [Suspect]
     Active Substance: RITUXIMAB
     Route: 058
  71. RITUXIMAB [Suspect]
     Active Substance: RITUXIMAB
     Route: 016
  72. RITUXIMAB [Suspect]
     Active Substance: RITUXIMAB
     Route: 043
  73. RITUXIMAB [Suspect]
     Active Substance: RITUXIMAB
     Route: 041
  74. RITUXIMAB [Suspect]
     Active Substance: RITUXIMAB
     Route: 065
  75. RITUXIMAB [Suspect]
     Active Substance: RITUXIMAB
     Route: 065
  76. OXYCODONE [Suspect]
     Active Substance: OXYCODONE
     Indication: Product used for unknown indication
     Route: 065
  77. COSENTYX [Suspect]
     Active Substance: SECUKINUMAB
     Indication: Psoriatic arthropathy
     Route: 065
  78. COSENTYX [Suspect]
     Active Substance: SECUKINUMAB
     Indication: Psoriatic arthropathy
     Route: 065
  79. ERELZI [Suspect]
     Active Substance: ETANERCEPT-SZZS
     Indication: Rheumatoid arthritis
     Route: 065

REACTIONS (50)
  - Hepatic cirrhosis [Fatal]
  - Red blood cell sedimentation rate increased [Fatal]
  - Breast cancer stage III [Fatal]
  - Bursitis [Fatal]
  - Delirium [Fatal]
  - Adjustment disorder with depressed mood [Fatal]
  - Gait disturbance [Fatal]
  - Depression [Fatal]
  - Amnesia [Fatal]
  - Joint stiffness [Fatal]
  - Blepharospasm [Not Recovered/Not Resolved]
  - Epilepsy [Not Recovered/Not Resolved]
  - Gastrooesophageal reflux disease [Fatal]
  - Hypercholesterolaemia [Fatal]
  - Joint range of motion decreased [Fatal]
  - Live birth [Fatal]
  - Product quality issue [Not Recovered/Not Resolved]
  - Taste disorder [Not Recovered/Not Resolved]
  - Ear pain [Fatal]
  - Grip strength decreased [Fatal]
  - Muscular weakness [Fatal]
  - Blister [Not Recovered/Not Resolved]
  - Weight decreased [Fatal]
  - Wound infection [Fatal]
  - Nail disorder [Fatal]
  - Bone erosion [Fatal]
  - Crohn^s disease [Fatal]
  - Laryngitis [Fatal]
  - Type 2 diabetes mellitus [Fatal]
  - Lupus-like syndrome [Fatal]
  - Exostosis [Fatal]
  - Contraindicated product administered [Not Recovered/Not Resolved]
  - Nausea [Fatal]
  - Dizziness [Fatal]
  - Duodenal ulcer perforation [Not Recovered/Not Resolved]
  - Pemphigus [Not Recovered/Not Resolved]
  - Systemic lupus erythematosus [Not Recovered/Not Resolved]
  - Inflammation [Fatal]
  - Hypoaesthesia [Not Recovered/Not Resolved]
  - Breast cancer stage II [Fatal]
  - Medication error [Fatal]
  - Bronchitis [Fatal]
  - Drug-induced liver injury [Not Recovered/Not Resolved]
  - Foot deformity [Fatal]
  - Osteoporosis [Fatal]
  - Psoriasis [Fatal]
  - Retinitis [Fatal]
  - Tachycardia [Fatal]
  - Upper respiratory tract infection [Fatal]
  - Visual impairment [Fatal]
